FAERS Safety Report 12310310 (Version 2)
Quarter: 2016Q2

REPORT INFORMATION
  Report Type: Spontaneous
  Country: US (occurrence: US)
  Receive Date: 20160427
  Receipt Date: 20160601
  Transmission Date: 20160815
  Serious: Yes (Hospitalization, Other)
  Sender: FDA-Public Use
  Company Number: US-ELI_LILLY_AND_COMPANY-US201604007491

PATIENT
  Age: 60 Year
  Sex: Male

DRUGS (7)
  1. FORTEO [Suspect]
     Active Substance: TERIPARATIDE
     Indication: OSTEOPOROSIS
     Dosage: 20 UG, QD
     Route: 065
     Dates: start: 2010, end: 2012
  2. FORTEO [Suspect]
     Active Substance: TERIPARATIDE
     Dosage: 20 UG, QD
     Route: 065
     Dates: start: 20160401
  3. VITAMIN D [Concomitant]
     Active Substance: CHOLECALCIFEROL
     Dosage: 2 DF, UNKNOWN
     Route: 065
  4. MULTIVITAMIN                       /07504101/ [Concomitant]
     Active Substance: VITAMINS
     Dosage: UNK
  5. CALCIUM [Suspect]
     Active Substance: CALCIUM
     Indication: PRODUCT USED FOR UNKNOWN INDICATION
     Dosage: UNK, UNKNOWN
     Route: 065
  6. VITAMIN D3 [Concomitant]
     Active Substance: CHOLECALCIFEROL
     Dosage: UNK
  7. FOSAMAX [Suspect]
     Active Substance: ALENDRONATE SODIUM
     Indication: PRODUCT USED FOR UNKNOWN INDICATION
     Dosage: UNK, UNKNOWN
     Route: 065

REACTIONS (16)
  - Cholecystitis [Recovered/Resolved]
  - Abscess [Unknown]
  - Fibula fracture [Unknown]
  - Ankle fracture [Unknown]
  - Nephrolithiasis [Unknown]
  - Spinal compression fracture [Unknown]
  - Pain [Unknown]
  - Radius fracture [Unknown]
  - Protein total decreased [Unknown]
  - Incorrect drug administration duration [Unknown]
  - Pleural effusion [Unknown]
  - Autonomic dysreflexia [Not Recovered/Not Resolved]
  - Limb discomfort [Unknown]
  - Skin ulcer [Recovered/Resolved]
  - Tibia fracture [Unknown]
  - Blood calcium decreased [Unknown]

NARRATIVE: CASE EVENT DATE: 2010
